FAERS Safety Report 4500746-0 (Version None)
Quarter: 2004Q4

REPORT INFORMATION
  Report Type: 
  Country: None (occurrence: None)
  Receive Date: 20041109
  Receipt Date: 20041028
  Transmission Date: 20050328
  Serious: Yes (Other)
  Sender: FDA-Public Use
  Company Number: 2004-121797-NL

PATIENT
  Age: 22 Year
  Sex: Female
  Weight: 86.4 kg

DRUGS (2)
  1. NUVARING [Suspect]
     Indication: CONTRACEPTION
     Dosage: VAGINAL
     Route: 067
     Dates: start: 20040514, end: 20040827
  2. LEXAPRO [Concomitant]

REACTIONS (3)
  - MIGRAINE [None]
  - PAPILLOMA VIRAL INFECTION [None]
  - SMEAR CERVIX ABNORMAL [None]
